FAERS Safety Report 8810215 (Version 2)
Quarter: 2013Q1

REPORT INFORMATION
  Report Type: Spontaneous
  Country: GB (occurrence: GB)
  Receive Date: 20120926
  Receipt Date: 20130121
  Transmission Date: 20140127
  Serious: Yes (Other)
  Sender: FDA-Public Use
  Company Number: GB-009507513-1209GBR009658

PATIENT
  Age: 73 Year
  Sex: Female
  Weight: 61 kg

DRUGS (4)
  1. COZAAR [Suspect]
     Dosage: 100 MG, QD
     Route: 048
     Dates: start: 20120612, end: 20120625
  2. INDAPAMIDE [Concomitant]
     Dosage: 2.5 MG, QD
  3. NAPROXEN [Concomitant]
     Dosage: 500 MG, BID
  4. SIMVASTATIN [Concomitant]
     Dosage: 20 MG, QD

REACTIONS (3)
  - Respiratory disorder [Unknown]
  - Oropharyngeal pain [Unknown]
  - Pruritus [Unknown]
